FAERS Safety Report 4688079-3 (Version None)
Quarter: 2005Q2

REPORT INFORMATION
  Report Type: 
  Country: None (occurrence: None)
  Receive Date: 20050610
  Receipt Date: 20050601
  Transmission Date: 20051028
  Serious: Yes (Hospitalization)
  Sender: FDA-Public Use
  Company Number: GR-ROCHE-406631

PATIENT
  Age: 17 Year
  Sex: Male

DRUGS (2)
  1. ROACCUTAN [Suspect]
     Indication: ACNE FULMINANS
     Route: 048
     Dates: start: 20041215, end: 20050415
  2. ROACCUTAN [Suspect]
     Route: 048
     Dates: start: 20050415, end: 20050415

REACTIONS (5)
  - ARTHRALGIA [None]
  - BONE PAIN [None]
  - PROTEIN C INCREASED [None]
  - PYREXIA [None]
  - RED BLOOD CELL SEDIMENTATION RATE INCREASED [None]
